FAERS Safety Report 9723061 (Version 1)
Quarter: 2013Q4

REPORT INFORMATION
  Report Type: Spontaneous
  Country: US (occurrence: None)
  Receive Date: 20131127
  Receipt Date: 20131127
  Transmission Date: 20140711
  Serious: Yes (Disabling)
  Sender: FDA-Public Use
  Company Number: None

PATIENT
  Age: 55 Year
  Sex: Female
  Weight: 57.15 kg

DRUGS (1)
  1. PROLIA INJECTION-AMGEN [Suspect]
     Indication: OSTEOPOROSIS
     Dosage: 2 INJ SIX MO APART
     Dates: start: 20130220, end: 20131126

REACTIONS (5)
  - Abdominal pain [None]
  - Weight decreased [None]
  - Oesophagitis [None]
  - Gastritis [None]
  - Pancreatitis [None]
